FAERS Safety Report 7774852 (Version 3)
Quarter: 2014Q1

REPORT INFORMATION
  Report Type: Report from Study
  Country: JP (occurrence: JP)
  Receive Date: 20110126
  Receipt Date: 20140226
  Transmission Date: 20141002
  Serious: Yes (Hospitalization)
  Sender: FDA-Public Use
  Company Number: JP-ELI_LILLY_AND_COMPANY-JP201101003691

PATIENT
  Age: 79 Year
  Sex: Female
  Weight: 43.5 kg

DRUGS (13)
  1. TADALAFIL [Suspect]
     Indication: PULMONARY ARTERIAL HYPERTENSION
     Dosage: 20 MG, DAILY (1/D)
     Route: 048
     Dates: start: 20101216, end: 20110105
  2. TADALAFIL [Suspect]
     Dosage: 20 MG, UNK
     Route: 048
     Dates: end: 20111110
  3. TADALAFIL [Suspect]
     Dosage: 40 MG, UNK
     Route: 048
     Dates: start: 20111111
  4. VOLIBRIS [Concomitant]
     Dosage: UNK, UNK
     Route: 048
     Dates: end: 20110105
  5. FRANDOL [Concomitant]
     Dosage: 40 MG, DAILY (1/D)
     Route: 062
  6. DORNER [Concomitant]
     Indication: PULMONARY ARTERIAL HYPERTENSION
     Dosage: 120 UG, UNK
     Route: 048
  7. OMEPRAL [Concomitant]
     Dosage: 20 MG, DAILY (1/D)
     Route: 048
  8. ALDACTONE A [Concomitant]
     Dosage: 1 D/F, DAILY (1/D)
     Route: 048
  9. CALBLOCK [Concomitant]
     Dosage: 8 MG, DAILY (1/D)
     Route: 048
  10. RASILEZ [Concomitant]
     Dosage: 150 MG, DAILY (1/D)
     Route: 048
  11. MUCOSOLVAN [Concomitant]
     Dosage: 45 MG, UNK
     Route: 048
  12. ALDOMET [Concomitant]
     Dosage: 250 MG, UNK
     Route: 048
  13. RIZE [Concomitant]
     Dosage: 10 MG, UNK
     Route: 048

REACTIONS (1)
  - Pulmonary oedema [Recovered/Resolved]
